FAERS Safety Report 21127274 (Version 1)
Quarter: 2022Q3

REPORT INFORMATION
  Report Type: Spontaneous
  Country: US (occurrence: None)
  Receive Date: 20220725
  Receipt Date: 20220725
  Transmission Date: 20221027
  Serious: Yes (Life-Threatening, Hospitalization)
  Sender: FDA-Public Use
  Company Number: None

PATIENT
  Age: 81 Year
  Sex: Male
  Weight: 65.9 kg

DRUGS (3)
  1. WARFARIN [Suspect]
     Active Substance: WARFARIN
     Indication: Atrial fibrillation
     Dosage: OTHER FREQUENCY : ALT 5MG AND 2.5MG;?
     Route: 048
  2. ZITHROMAX [Suspect]
     Active Substance: AZITHROMYCIN DIHYDRATE
     Dates: start: 20220720, end: 20220723
  3. MOLNUPIRAVIR [Suspect]
     Active Substance: MOLNUPIRAVIR
     Dates: start: 20220720, end: 20220723

REACTIONS (4)
  - Asthenia [None]
  - Intraventricular haemorrhage [None]
  - Drug interaction [None]
  - International normalised ratio [None]

NARRATIVE: CASE EVENT DATE: 20220723
